FAERS Safety Report 7919154-5 (Version None)
Quarter: 2011Q4

REPORT INFORMATION
  Report Type: 
  Country: None (occurrence: None)
  Receive Date: 20111117
  Receipt Date: 20111103
  Transmission Date: 20120403
  Serious: No
  Sender: FDA-Public Use
  Company Number: US-AMGEN-USASP2011028572

PATIENT
  Age: 74 Year
  Sex: Male
  Weight: 95.238 kg

DRUGS (2)
  1. VALTREX [Concomitant]
     Dosage: UNK
     Dates: start: 20110101
  2. ENBREL [Suspect]
     Indication: PSORIASIS
     Dosage: 50 MG, 2 TIMES/WK
     Route: 058
     Dates: start: 20110421, end: 20110519

REACTIONS (1)
  - HERPES ZOSTER [None]
